FAERS Safety Report 9681471 (Version 1)
Quarter: 2013Q4

REPORT INFORMATION
  Report Type: Spontaneous
  Country: JP (occurrence: None)
  Receive Date: 20131107
  Receipt Date: 20131107
  Transmission Date: 20140711
  Serious: Yes (Other)
  Sender: FDA-Public Use
  Company Number: 2013P1020477

PATIENT
  Age: 37 Year
  Sex: Male

DRUGS (1)
  1. LAMOTRIGINE [Suspect]
     Indication: EPILEPSY
     Dosage: 2 WEEKS

REACTIONS (4)
  - Acute generalised exanthematous pustulosis [None]
  - Toxic epidermal necrolysis [None]
  - Fatigue [None]
  - Pyrexia [None]
